FAERS Safety Report 5304929-1 (Version None)
Quarter: 2007Q2

REPORT INFORMATION
  Report Type: 
  Country: None (occurrence: None)
  Receive Date: 20070423
  Receipt Date: 20070416
  Transmission Date: 20071010
  Serious: Yes (Other)
  Sender: FDA-Public Use
  Company Number: GB-SHR-GB-2007-013189

PATIENT
  Age: 32 Year
  Sex: Female
  Weight: 68 kg

DRUGS (4)
  1. YASMIN [Suspect]
     Indication: ORAL CONTRACEPTION
     Dates: start: 20070130, end: 20070228
  2. FISH OIL [Concomitant]
  3. EVENING PRIMROSE OIL [Concomitant]
  4. VITAMIN B6 [Concomitant]

REACTIONS (4)
  - AGITATION [None]
  - DEPRESSION SUICIDAL [None]
  - MALAISE [None]
  - SUICIDAL IDEATION [None]
